FAERS Safety Report 7589541-6 (Version None)
Quarter: 2011Q3

REPORT INFORMATION
  Report Type: 
  Country: None (occurrence: None)
  Receive Date: 20110705
  Receipt Date: 20110630
  Transmission Date: 20111222
  Serious: Yes (Other)
  Sender: FDA-Public Use
  Company Number: ES-PFIZER INC-2011147098

PATIENT
  Age: 45 Year
  Sex: Female

DRUGS (9)
  1. ETOPOSIDE [Suspect]
     Indication: NON-HODGKIN'S LYMPHOMA
     Dosage: 77 MG/DAY
     Route: 042
     Dates: start: 20110302, end: 20110305
  2. DOXORUBICIN HCL [Suspect]
     Indication: NON-HODGKIN'S LYMPHOMA
     Dosage: 15.4 MG/DAY
     Route: 042
     Dates: start: 20110302, end: 20110305
  3. ALLOPURINOL [Concomitant]
  4. MESNA [Concomitant]
  5. ACTOCORTINA [Concomitant]
  6. RITUXAN [Suspect]
     Indication: NON-HODGKIN'S LYMPHOMA
     Dosage: 600 MG/DAY
     Route: 042
     Dates: start: 20110301, end: 20110301
  7. EPREX [Concomitant]
  8. VINCRISTINE SULFATE [Suspect]
     Indication: NON-HODGKIN'S LYMPHOMA
     Dosage: 0.6 MG/DAY
     Route: 042
     Dates: start: 20110302, end: 20110305
  9. ONDANSETRON [Concomitant]

REACTIONS (1)
  - PALMAR-PLANTAR ERYTHRODYSAESTHESIA SYNDROME [None]
